FAERS Safety Report 15254273 (Version 1)
Quarter: 2018Q3

REPORT INFORMATION
  Report Type: Spontaneous
  Country: US (occurrence: US)
  Receive Date: 20180808
  Receipt Date: 20180808
  Transmission Date: 20181010
  Serious: No
  Sender: FDA-Public Use
  Company Number: US-BIOGEN-2017BI00449673

PATIENT
  Sex: Female

DRUGS (1)
  1. TYSABRI [Suspect]
     Active Substance: NATALIZUMAB
     Indication: MULTIPLE SCLEROSIS
     Route: 065
     Dates: start: 20160707, end: 20170119

REACTIONS (9)
  - Gastric infection [Recovered/Resolved]
  - Multiple allergies [Unknown]
  - Asthenia [Recovered/Resolved]
  - Central nervous system lesion [Unknown]
  - Cognitive disorder [Unknown]
  - Hypoacusis [Unknown]
  - Demyelination [Unknown]
  - General physical health deterioration [Unknown]
  - Fatigue [Recovered/Resolved]
